FAERS Safety Report 4847863-3 (Version None)
Quarter: 2005Q4

REPORT INFORMATION
  Report Type: 
  Country: None (occurrence: None)
  Receive Date: 20051208
  Receipt Date: 20051118
  Transmission Date: 20060501
  Serious: Yes (Other)
  Sender: FDA-Public Use
  Company Number: PHEH2005US12748

PATIENT
  Age: 82 Year
  Sex: Male

DRUGS (3)
  1. ZOMETA [Suspect]
     Indication: METASTASES TO BONE
     Dosage: 4 MG, Q 1 MONTH
     Route: 042
     Dates: start: 20031112, end: 20050525
  2. STEROIDS NOS [Concomitant]
  3. TAXOTERE [Concomitant]
     Indication: CHEMOTHERAPY

REACTIONS (6)
  - BONE DISORDER [None]
  - ENANTHEMA [None]
  - GINGIVAL OEDEMA [None]
  - ORAL PAIN [None]
  - ORAL SOFT TISSUE DISORDER [None]
  - OSTEONECROSIS [None]
